FAERS Safety Report 9856113 (Version 2)
Quarter: 2014Q1

REPORT INFORMATION
  Report Type: Spontaneous
  Country: US (occurrence: US)
  Receive Date: 20140130
  Receipt Date: 20140312
  Transmission Date: 20141002
  Serious: Yes (Other)
  Sender: FDA-Public Use
  Company Number: US-ASTRAZENECA-2014SE05226

PATIENT
  Age: 50 Year
  Sex: Male
  Weight: 102.5 kg

DRUGS (18)
  1. PRILOSEC [Suspect]
     Indication: GASTROOESOPHAGEAL REFLUX DISEASE
     Route: 048
     Dates: start: 2008
  2. PRILOSEC [Suspect]
     Indication: ULCER
     Route: 048
     Dates: start: 2008
  3. PRILOSEC [Suspect]
     Indication: GASTROOESOPHAGEAL REFLUX DISEASE
     Route: 048
  4. PRILOSEC [Suspect]
     Indication: ULCER
     Route: 048
  5. HUMIRA [Concomitant]
     Indication: ARTHRITIS
     Route: 058
     Dates: start: 2009
  6. VICODIN [Concomitant]
     Indication: PAIN
     Route: 048
     Dates: start: 2013
  7. TERAZOSIN [Concomitant]
     Indication: BENIGN PROSTATIC HYPERPLASIA
     Route: 048
     Dates: start: 2013
  8. ALPRAZOLAM [Concomitant]
  9. CELEBREX [Concomitant]
     Dosage: 200 TWICE DAILY AS NEEDED
  10. NASAL STEROIDS [Concomitant]
  11. HYDROCODONE [Concomitant]
     Dosage: 5/500 EVERY 6 HOURS
  12. VIIBRYD [Concomitant]
     Route: 048
     Dates: start: 20130826
  13. MYCOLOG II [Concomitant]
     Dosage: 100,000 UNIT/G-0.1%, 1 APPLICATION TID
     Route: 061
     Dates: start: 20130827
  14. MINOCIN [Concomitant]
     Route: 048
     Dates: start: 20130826
  15. HYTRIN [Concomitant]
     Route: 048
     Dates: start: 20130826
  16. CIPRO [Concomitant]
     Route: 048
     Dates: start: 20130827
  17. COL-RITE [Concomitant]
  18. FLONASE [Concomitant]

REACTIONS (17)
  - Renal cyst [Unknown]
  - Splenomegaly [Unknown]
  - Hepatomegaly [Unknown]
  - Polyp [Unknown]
  - Nephrolithiasis [Unknown]
  - Gastrointestinal disorder [Unknown]
  - Psoriatic arthropathy [Unknown]
  - Osteoarthritis [Unknown]
  - Back pain [Unknown]
  - Poor quality sleep [Unknown]
  - Metatarsalgia [Unknown]
  - Arthropathy [Unknown]
  - Asthenia [Unknown]
  - Benign prostatic hyperplasia [Unknown]
  - Dysuria [Recovering/Resolving]
  - Depression [Unknown]
  - Abdominal pain [Unknown]
